FAERS Safety Report 4846016-2 (Version None)
Quarter: 2005Q4

REPORT INFORMATION
  Report Type: 
  Country: None (occurrence: None)
  Receive Date: 20051205
  Receipt Date: 20051205
  Transmission Date: 20060501
  Serious: Yes (Hospitalization, Other)
  Sender: FDA-Public Use
  Company Number: None

PATIENT
  Sex: Female
  Weight: 58.9676 kg

DRUGS (5)
  1. DURAGESIC-100 [Suspect]
     Indication: BACK DISORDER
     Dosage: 150 MCG EVERY 72'HOURS TOP
     Route: 061
     Dates: end: 20051231
  2. DURAGESIC-100 [Suspect]
     Indication: PAIN
     Dosage: 150 MCG EVERY 72'HOURS TOP
     Route: 061
     Dates: end: 20051231
  3. PREDNISONE [Concomitant]
  4. CYMBALTA [Concomitant]
  5. NAPROXEN [Concomitant]

REACTIONS (3)
  - CONDITION AGGRAVATED [None]
  - DRUG WITHDRAWAL SYNDROME [None]
  - PAIN [None]
